FAERS Safety Report 26081224 (Version 1)
Quarter: 2025Q4

REPORT INFORMATION
  Report Type: Spontaneous
  Country: US (occurrence: US)
  Receive Date: 20251124
  Receipt Date: 20251124
  Transmission Date: 20260119
  Serious: No
  Sender: SANOFI AVENTIS
  Company Number: US-SA-2025SA350824

PATIENT
  Age: 83 Year
  Sex: Female
  Weight: 53.64 kg

DRUGS (36)
  1. DUPIXENT [Suspect]
     Active Substance: DUPILUMAB
     Indication: Chronic respiratory failure
     Dosage: 300 MG, QOW
     Route: 058
  2. TOBRAMYCIN [Concomitant]
     Active Substance: TOBRAMYCIN
  3. BANOPHEN [Concomitant]
     Active Substance: DIPHENHYDRAMINE HYDROCHLORIDE
  4. DICLOFENAC SODIUM [Concomitant]
     Active Substance: DICLOFENAC SODIUM
  5. CIPROFLOXACIN HYDROCHLORIDE [Concomitant]
     Active Substance: CIPROFLOXACIN HYDROCHLORIDE
  6. VALTREX [Concomitant]
     Active Substance: VALACYCLOVIR HYDROCHLORIDE
  7. PREDNISONE [Concomitant]
     Active Substance: PREDNISONE
  8. METOCLOPRAMIDE HYDROCHLORIDE [Concomitant]
     Active Substance: METOCLOPRAMIDE HYDROCHLORIDE
  9. IBUPROFEN [Concomitant]
     Active Substance: IBUPROFEN
  10. FLUCONAZOLE [Concomitant]
     Active Substance: FLUCONAZOLE
  11. COLESTID [Concomitant]
     Active Substance: COLESTIPOL HYDROCHLORIDE
  12. AMBIEN [Concomitant]
     Active Substance: ZOLPIDEM TARTRATE
  13. CALTRATE 600 PLUS [Concomitant]
  14. FISH OIL [Concomitant]
     Active Substance: FISH OIL
  15. BIOTIN PLUS [Concomitant]
  16. COLISTIMETHATE [Concomitant]
     Active Substance: COLISTIMETHATE SODIUM
  17. SODIUM CHLORIDE [Concomitant]
     Active Substance: SODIUM CHLORIDE
  18. NEILMED SINUS RINSE [Concomitant]
     Active Substance: SODIUM BICARBONATE\SODIUM CHLORIDE
  19. PULMICORT TURBUHALER [Concomitant]
     Active Substance: BUDESONIDE
  20. ALBUTEROL SULFATE [Concomitant]
     Active Substance: ALBUTEROL SULFATE
  21. PROLIA [Concomitant]
     Active Substance: DENOSUMAB
  22. FAMOTIDINE [Concomitant]
     Active Substance: FAMOTIDINE
  23. MELOXICAM [Concomitant]
     Active Substance: MELOXICAM
  24. MUCINEX [Concomitant]
     Active Substance: GUAIFENESIN
  25. ESTRADIOL [Concomitant]
     Active Substance: ESTRADIOL
  26. CLOTRIMAZOLE [Concomitant]
     Active Substance: CLOTRIMAZOLE
  27. ARIKAYCE [Concomitant]
     Active Substance: AMIKACIN
  28. ATORVASTATIN CALCIUM [Concomitant]
     Active Substance: ATORVASTATIN CALCIUM
  29. ADVAIR HFA [Concomitant]
     Active Substance: FLUTICASONE PROPIONATE\SALMETEROL XINAFOATE
  30. ADVAIR HFA [Concomitant]
     Active Substance: FLUTICASONE PROPIONATE\SALMETEROL XINAFOATE
  31. PROBIOTIC 10 [BIFIDOBACTERIUM BIFIDUM;BIFIDOBACTERIUM LACTIS;LACTIPLAN [Concomitant]
  32. BIOTIN [Concomitant]
     Active Substance: BIOTIN
  33. TYLENOL [Concomitant]
     Active Substance: ACETAMINOPHEN
  34. ALEVE [Concomitant]
     Active Substance: NAPROXEN SODIUM
  35. OYSTER SHELL [Concomitant]
     Active Substance: OSTREA EDULIS SHELL
  36. SODIUM CHLORIDE [Concomitant]
     Active Substance: SODIUM CHLORIDE

REACTIONS (3)
  - Abdominal distension [Unknown]
  - Condition aggravated [Unknown]
  - Product use in unapproved indication [Unknown]

NARRATIVE: CASE EVENT DATE: 20250101
